FAERS Safety Report 7237561-3 (Version None)
Quarter: 2011Q1

REPORT INFORMATION
  Report Type: 
  Country: None (occurrence: None)
  Receive Date: 20110113
  Receipt Date: 20110105
  Transmission Date: 20110831
  Serious: Yes (Other)
  Sender: FDA-Public Use
  Company Number: CIP11000019

PATIENT
  Age: 77 Year
  Sex: Female

DRUGS (3)
  1. MULTIVITAMIN /00831701/ (VITAMIN NOS) [Concomitant]
  2. ACTONEL [Suspect]
     Indication: OSTEOPOROSIS PROPHYLAXIS
     Dosage: ORAL
     Route: 048
     Dates: start: 20000101
  3. FOLIC ACID [Concomitant]

REACTIONS (5)
  - CHOKING SENSATION [None]
  - CARDIAC FAILURE [None]
  - LOSS OF CONSCIOUSNESS [None]
  - ECONOMIC PROBLEM [None]
  - MUSCLE SPASMS [None]
